APPROVED DRUG PRODUCT: DEFERASIROX
Active Ingredient: DEFERASIROX
Strength: 360MG
Dosage Form/Route: TABLET;ORAL
Application: A212669 | Product #003 | TE Code: AB
Applicant: CHARTWELL RX SCIENCES LLC
Approved: May 27, 2021 | RLD: No | RS: No | Type: RX